FAERS Safety Report 6626973-4 (Version None)
Quarter: 2010Q1

REPORT INFORMATION
  Report Type: 
  Country: None (occurrence: None)
  Receive Date: 20100308
  Receipt Date: 20100222
  Transmission Date: 20100710
  Serious: Yes (Hospitalization)
  Sender: FDA-Public Use
  Company Number: FKO201000048

PATIENT
  Age: 45 Year
  Sex: Female

DRUGS (4)
  1. FLUOROURACIL [Suspect]
     Indication: COLON CANCER METASTATIC
  2. IRINOTECAN (IRINOTECAN) (IRINOTECAN) [Suspect]
     Indication: COLON CANCER METASTATIC
  3. ERBITUX [Concomitant]
  4. FOLINIC ACID (FOLINIC ACID) (FOLINIC ACID) [Concomitant]

REACTIONS (1)
  - PNEUMONIA [None]
